FAERS Safety Report 15259329 (Version 1)
Quarter: 2018Q3

REPORT INFORMATION
  Report Type: Spontaneous
  Country: US (occurrence: US)
  Receive Date: 20180719
  Receipt Date: 20180719
  Transmission Date: 20181010
  Serious: Yes (Death)
  Sender: FDA-Public Use
  Company Number: None

PATIENT
  Age: 68 Year
  Sex: Male

DRUGS (8)
  1. PROMETHAZINE [Concomitant]
     Active Substance: PROMETHAZINE\PROMETHAZINE HYDROCHLORIDE
  2. FARYDAK [Suspect]
     Active Substance: PANOBINOSTAT
     Indication: HYPERLIPIDAEMIA
     Route: 048
     Dates: start: 20180606, end: 20180715
  3. IRON [Concomitant]
     Active Substance: IRON
  4. LEVOTHYROXINE. [Concomitant]
     Active Substance: LEVOTHYROXINE
  5. GABAPENTIN. [Concomitant]
     Active Substance: GABAPENTIN
  6. ACYCLOVIR. [Concomitant]
     Active Substance: ACYCLOVIR
  7. CALTRATE [Concomitant]
     Active Substance: CALCIUM CARBONATE
  8. DEXAMETHASONE. [Concomitant]
     Active Substance: DEXAMETHASONE

REACTIONS (1)
  - Death [None]

NARRATIVE: CASE EVENT DATE: 20180715
